FAERS Safety Report 21971460 (Version 1)
Quarter: 2023Q1

REPORT INFORMATION
  Report Type: Report from Study
  Country: MX (occurrence: MX)
  Receive Date: 20230209
  Receipt Date: 20230209
  Transmission Date: 20230417
  Serious: Yes (Hospitalization)
  Sender: FDA-Public Use
  Company Number: MX-002147023-NVSC2023MX008321

PATIENT
  Age: 81 Year
  Sex: Female
  Weight: 66.5 kg

DRUGS (8)
  1. ENTRESTO [Suspect]
     Active Substance: SACUBITRIL\VALSARTAN
     Indication: Cardiac disorder
     Dosage: 0.5 DOSAGE FORM, QD (100MG) (A YEAR AGO APPROXIMATELY)
     Route: 048
     Dates: end: 202212
  2. ENTRESTO [Suspect]
     Active Substance: SACUBITRIL\VALSARTAN
     Indication: Blood pressure abnormal
     Dosage: 1 DOSAGE FORM, QD (100 MG) (STOP DATE - 15 DAYS AGO)
     Route: 048
     Dates: start: 202301
  3. SACUBITRIL\VALSARTAN [Concomitant]
     Active Substance: SACUBITRIL\VALSARTAN
     Indication: Cardiac disorder
     Dosage: 1 DOSAGE FORM, BID (50 MG) (15 DAYS AGO APPROXIMATELY)
     Route: 048
  4. SACUBITRIL\VALSARTAN [Concomitant]
     Active Substance: SACUBITRIL\VALSARTAN
     Indication: Blood pressure abnormal
     Dosage: 1 DOSAGE FORM, Q12H (50 MG) (15 DAYS AGO APPROXIMATELY)
     Route: 048
     Dates: start: 202212, end: 202301
  5. PEMIX [Concomitant]
     Indication: Oesophagitis
     Dosage: 1 DOSAGE FORM, QD (BEFORE EACH MEAL), STARTED ALMOST 1 YEAR AGO
     Route: 048
  6. ELATEC [Concomitant]
     Indication: Cardiovascular disorder
     Dosage: 1 DOSAGE FORM, QD (1 BAG) (MORE THAN 1 YEAR AGO)
     Route: 048
  7. CLONAZEPAM [Concomitant]
     Active Substance: CLONAZEPAM
     Indication: Insomnia
     Dosage: 6 DOSAGE FORM, QD (AT NIGHT) (MORE THAN 10 YEARS AGO)
     Route: 048
  8. ENSURE ADVANCE [Concomitant]
     Indication: Vitamin supplementation
     Dosage: 1 DOSAGE FORM, QD (FLASK) (MORE THAN 1 YEAR AGO)
     Route: 048

REACTIONS (5)
  - Bradyarrhythmia [Recovered/Resolved]
  - Blood pressure fluctuation [Recovered/Resolved]
  - Hypoacusis [Unknown]
  - Wrong technique in product usage process [Unknown]
  - Off label use [Not Recovered/Not Resolved]

NARRATIVE: CASE EVENT DATE: 20220901
